FAERS Safety Report 5804617-9 (Version None)
Quarter: 2008Q3

REPORT INFORMATION
  Report Type: 
  Country: None (occurrence: None)
  Receive Date: 20080709
  Receipt Date: 20080625
  Transmission Date: 20090109
  Serious: Yes (Hospitalization)
  Sender: FDA-Public Use
  Company Number: GB-ROCHE-572596

PATIENT
  Sex: Female
  Weight: 88.9 kg

DRUGS (3)
  1. ORLISTAT [Suspect]
     Indication: OBESITY
     Route: 048
     Dates: end: 20080525
  2. ORLISTAT [Suspect]
     Route: 048
     Dates: start: 20071212, end: 20080401
  3. BUMETANIDE [Concomitant]
     Route: 048

REACTIONS (1)
  - LOCALISED INFECTION [None]
